FAERS Safety Report 17436236 (Version 1)
Quarter: 2020Q1

REPORT INFORMATION
  Report Type: Spontaneous
  Country: US (occurrence: US)
  Receive Date: 20200219
  Receipt Date: 20200219
  Transmission Date: 20200409
  Serious: No
  Sender: FDA-Public Use
  Company Number: US-LANTHEUS-LMI-2019-00242

PATIENT
  Age: 54 Year
  Sex: Female

DRUGS (1)
  1. DEFINITY [Suspect]
     Active Substance: PERFLUTREN
     Indication: ECHOCARDIOGRAM
     Dosage: 4 MILLILITER, (1.5 ML DEFINITY PREPARED IN 8.5 ML PRESERVATIVE-FREE NORMAL SALINE)
     Route: 040
     Dates: start: 20190327, end: 20190327

REACTIONS (3)
  - Headache [Recovered/Resolved]
  - Spinal pain [Recovered/Resolved]
  - Blood pressure increased [Recovered/Resolved]

NARRATIVE: CASE EVENT DATE: 20190327
